FAERS Safety Report 18022879 (Version 1)
Quarter: 2020Q3

REPORT INFORMATION
  Report Type: Spontaneous
  Country: DE (occurrence: DE)
  Receive Date: 20200715
  Receipt Date: 20200715
  Transmission Date: 20201103
  Serious: Yes (Hospitalization)
  Sender: FDA-Public Use
  Company Number: DE-LUPIN PHARMACEUTICALS INC.-2020-03334

PATIENT
  Age: 61 Year
  Weight: 90 kg

DRUGS (9)
  1. CLONIDINE. [Concomitant]
     Active Substance: CLONIDINE
     Indication: HYPERTENSION
     Dosage: 475 MICROGRAM
     Route: 065
  2. RIFAMPIN. [Suspect]
     Active Substance: RIFAMPIN
     Indication: DEVICE RELATED INFECTION
     Dosage: UNK
     Route: 065
  3. AMLODIPINE [Interacting]
     Active Substance: AMLODIPINE BESYLATE
     Indication: HYPERTENSION
     Dosage: 10 MILLIGRAM
     Route: 065
  4. VALSARTAN. [Interacting]
     Active Substance: VALSARTAN
     Indication: HYPERTENSION
     Dosage: 320 MILLIGRAM
     Route: 065
  5. CHLORTALIDONE [Concomitant]
     Active Substance: CHLORTHALIDONE
     Indication: HYPERTENSION
     Dosage: 25 MILLIGRAM
     Route: 065
  6. MEROPENEM. [Concomitant]
     Active Substance: MEROPENEM
     Indication: DEVICE RELATED INFECTION
     Dosage: UNK
     Route: 065
  7. VANCOMYCIN [Concomitant]
     Active Substance: VANCOMYCIN
     Indication: DEVICE RELATED INFECTION
     Dosage: UNK
     Route: 065
  8. BISOPROLOL [Interacting]
     Active Substance: BISOPROLOL
     Indication: HYPERTENSION
     Dosage: 10 MILLIGRAM
     Route: 065
  9. DOXAZOSIN [Interacting]
     Active Substance: DOXAZOSIN MESYLATE
     Indication: HYPERTENSION
     Dosage: 16 MILLIGRAM
     Route: 065

REACTIONS (3)
  - Drug interaction [Unknown]
  - Condition aggravated [Recovered/Resolved]
  - Hypertension [Recovered/Resolved]
